FAERS Safety Report 17815082 (Version 1)
Quarter: 2020Q2

REPORT INFORMATION
  Report Type: Spontaneous
  Country: US (occurrence: US)
  Receive Date: 20200521
  Receipt Date: 20200521
  Transmission Date: 20200714
  Serious: Yes (Hospitalization)
  Sender: FDA-Public Use
  Company Number: None

PATIENT
  Age: 59 Year
  Sex: Female

DRUGS (12)
  1. CLARINEX [Concomitant]
     Active Substance: DESLORATADINE
  2. RIFAMPIN. [Concomitant]
     Active Substance: RIFAMPIN
  3. SINGULAIR [Concomitant]
     Active Substance: MONTELUKAST SODIUM
  4. THEOPHYLLINE [Concomitant]
     Active Substance: THEOPHYLLINE ANHYDROUS
  5. PROVENTIL AER [Concomitant]
  6. ADVAIR DISKU [Concomitant]
  7. ETHAMBUTOL [Concomitant]
     Active Substance: ETHAMBUTOL HYDROCHLORIDE
  8. CITALOPRAM [Concomitant]
     Active Substance: CITALOPRAM HYDROBROMIDE
  9. PROTONIX [Concomitant]
     Active Substance: PANTOPRAZOLE SODIUM
  10. TOBRAMYCIN 300MG/5ML 20ML [Suspect]
     Active Substance: TOBRAMYCIN
     Indication: BRONCHIECTASIS
     Dosage: OTHER DOSE:1 VIAL;OTHER ROUTE:INH-4 WK ON 4 WK OFF?
     Route: 055
     Dates: start: 20180414
  11. AZITHROMYCIN ANHYDROUS. [Concomitant]
     Active Substance: AZITHROMYCIN ANHYDROUS
  12. XOPENEX NEB [Concomitant]

REACTIONS (1)
  - Pneumonia [None]

NARRATIVE: CASE EVENT DATE: 20200516
